FAERS Safety Report 5721254-5 (Version None)
Quarter: 2008Q2

REPORT INFORMATION
  Report Type: 
  Country: None (occurrence: None)
  Receive Date: 20080429
  Receipt Date: 20080417
  Transmission Date: 20081010
  Serious: Yes (Death, Other)
  Sender: FDA-Public Use
  Company Number: US-JNJFOC-20080301659

PATIENT
  Sex: Male
  Weight: 90.27 kg

DRUGS (1)
  1. DURAGESIC-100 [Suspect]
     Indication: CANCER PAIN
     Route: 062

REACTIONS (8)
  - ASTHENIA [None]
  - DEATH [None]
  - DISORIENTATION [None]
  - DYSPNOEA [None]
  - FEELING HOT [None]
  - INSOMNIA [None]
  - PARANOIA [None]
  - SINUS CONGESTION [None]
